FAERS Safety Report 21459594 (Version 2)
Quarter: 2022Q4

REPORT INFORMATION
  Report Type: Report from Study
  Country: CA (occurrence: CA)
  Receive Date: 20221014
  Receipt Date: 20221020
  Transmission Date: 20230113
  Serious: Yes (Hospitalization, Other)
  Sender: FDA-Public Use
  Company Number: CA-BRISTOL-MYERS SQUIBB COMPANY-2022-118556

PATIENT
  Age: 48 Year
  Sex: Male
  Weight: 74 kg

DRUGS (13)
  1. NIVOLUMAB [Suspect]
     Active Substance: NIVOLUMAB
     Indication: Malignant melanoma
     Dosage: ACTION TAKEN: DOSE DELAYED?PRIOR TO THE ONSET OF THE EVENT, THE PATIENT RECEIVED HIS MOST RECENT DOS
     Route: 042
     Dates: start: 20220705
  2. IPILIMUMAB [Suspect]
     Active Substance: IPILIMUMAB
     Indication: Malignant melanoma
     Dosage: ACTION TAKEN: DOSE DELAYED?PRIOR TO THE ONSET OF THE EVENT, THE PATIENT RECEIVED HIS MOST RECENT DOS
     Route: 042
     Dates: start: 20220705
  3. IPILIMUMAB [Suspect]
     Active Substance: IPILIMUMAB
     Dosage: ACTION TAKEN: DOSE DELAYED
     Route: 042
     Dates: start: 20220913
  4. EFINACONAZOLE [Concomitant]
     Active Substance: EFINACONAZOLE
     Indication: Product used for unknown indication
     Dosage: 1DF= 10 UNITS NOT PROVIDED?ONGOING
     Route: 061
     Dates: start: 20220815
  5. ALBUTEROL [Concomitant]
     Active Substance: ALBUTEROL
     Indication: Product used for unknown indication
     Dosage: 1DF= 100 UNITS NOT PROVIDED?ONGOING
     Route: 055
     Dates: start: 1992
  6. VITAMINS NOS [Concomitant]
     Active Substance: VITAMINS
     Indication: Product used for unknown indication
     Dosage: 1DF= 1 UNIT NOT PROVIDED?ONGOING
     Route: 048
     Dates: start: 2020
  7. CLOTRIMAZOLE [Concomitant]
     Active Substance: CLOTRIMAZOLE
     Indication: Product used for unknown indication
     Dosage: 1DF= 1 UNIT NOT PROVIDED?ONGOING
     Route: 061
     Dates: start: 20220620
  8. CLONAZEPAM [Concomitant]
     Active Substance: CLONAZEPAM
     Indication: Product used for unknown indication
     Dosage: ONGOING
     Route: 048
     Dates: start: 20220702
  9. LOPERAMIDE [Concomitant]
     Active Substance: LOPERAMIDE
     Indication: Diarrhoea
     Dosage: ONGOING
     Route: 048
     Dates: start: 20220707
  10. BILASTINE [Concomitant]
     Active Substance: BILASTINE
     Indication: Pruritus
     Dosage: ONGOING
     Route: 048
     Dates: start: 20220810
  11. TERBINAFINE [Concomitant]
     Active Substance: TERBINAFINE
     Indication: Product used for unknown indication
     Dosage: 1DF= 1 UNIT NOT PROVIDED?ONGOING
     Route: 061
     Dates: start: 20220815
  12. SIMETHICONE (DIMETHICONE) [Concomitant]
     Active Substance: DIMETHICONE
     Indication: Abdominal distension
     Dosage: ONGOING
     Route: 048
     Dates: start: 20220928
  13. TYLENOL [Concomitant]
     Active Substance: ACETAMINOPHEN
     Indication: Headache
     Dosage: ONGOING
     Route: 048
     Dates: start: 20220829

REACTIONS (1)
  - Soft tissue infection [Not Recovered/Not Resolved]

NARRATIVE: CASE EVENT DATE: 20220930
